FAERS Safety Report 4884587-0 (Version None)
Quarter: 2005Q4

REPORT INFORMATION
  Report Type: 
  Country: None (occurrence: None)
  Receive Date: 20051201
  Receipt Date: 20050903
  Transmission Date: 20060501
  Serious: No
  Sender: FDA-Public Use
  Company Number: 2005PV001718

PATIENT
  Age: 67 Year
  Sex: Female
  Weight: 95.2554 kg

DRUGS (6)
  1. BYETTA [Suspect]
     Indication: DIABETES MELLITUS NON-INSULIN-DEPENDENT
     Dosage: 5 MCG;BID;SC
     Route: 058
     Dates: start: 20050810
  2. ACTOS [Concomitant]
  3. GLYBURIDE AND METFORMIN HCL [Concomitant]
  4. HYZAAR [Concomitant]
  5. LOVASTATIN [Concomitant]
  6. FOSAMAX [Concomitant]

REACTIONS (1)
  - BLOOD GLUCOSE INCREASED [None]
